FAERS Safety Report 5047111-8 (Version None)
Quarter: 2006Q3

REPORT INFORMATION
  Report Type: 
  Country: None (occurrence: None)
  Receive Date: 20060703
  Receipt Date: 20060622
  Transmission Date: 20061208
  Serious: Yes (Hospitalization)
  Sender: FDA-Public Use
  Company Number: 226603

PATIENT
  Age: 67 Year
  Sex: Female

DRUGS (11)
  1. AVASTIN [Suspect]
     Indication: NON-SMALL CELL LUNG CANCER
     Dosage: 1170 MG, INTRAVENOUS
     Route: 042
     Dates: start: 20060531
  2. CARBOPLATIN [Suspect]
     Indication: NON-SMALL CELL LUNG CANCER
     Dosage: 517 MG, INTRAVENOUS
     Route: 042
     Dates: start: 20060531
  3. DOCETAXEL (DOCETAXEL) [Suspect]
     Indication: NON-SMALL CELL LUNG CANCER
     Dosage: 143 MG, INTRAVENOUS
     Route: 042
     Dates: start: 20060531
  4. AMBIEN [Concomitant]
  5. DARVON [Concomitant]
  6. ZOFRAN [Concomitant]
  7. PROMETHEZINE HCL [Concomitant]
  8. CEFEPIME (CEFEPIME) [Concomitant]
  9. PROTONIX [Concomitant]
  10. MORPHINE [Concomitant]
  11. ATENOLOL [Concomitant]

REACTIONS (19)
  - BACK PAIN [None]
  - BLOOD POTASSIUM DECREASED [None]
  - CONSTIPATION [None]
  - DIARRHOEA [None]
  - DYSPNOEA [None]
  - FEBRILE NEUTROPENIA [None]
  - FLUID INTAKE REDUCED [None]
  - HAEMATOCRIT DECREASED [None]
  - HAEMOGLOBIN DECREASED [None]
  - HAEMOTHORAX [None]
  - HYPOTENSION [None]
  - HYPOXIA [None]
  - MALIGNANT NEOPLASM PROGRESSION [None]
  - NAUSEA [None]
  - ORAL INTAKE REDUCED [None]
  - PLEURAL EFFUSION [None]
  - RED BLOOD CELL COUNT DECREASED [None]
  - RESPIRATORY RATE INCREASED [None]
  - WHITE BLOOD CELL COUNT DECREASED [None]
